FAERS Safety Report 18050442 (Version 2)
Quarter: 2024Q1

REPORT INFORMATION
  Report Type: Spontaneous
  Country: DE (occurrence: DE)
  Receive Date: 20200721
  Receipt Date: 20240318
  Transmission Date: 20240410
  Serious: Yes (Hospitalization)
  Sender: FDA-Public Use
  Company Number: DE-KIFSAFE3DCGMA-20185198

PATIENT
  Age: 7 Year
  Sex: Male
  Weight: 29 kg

DRUGS (7)
  1. PREDNISOLONE [Suspect]
     Active Substance: PREDNISOLONE
     Indication: Immunosuppressant drug therapy
     Dosage: 2 DOSAGE FORMS ,DAILY DOSE: 2 DF DOSAGE FORM EVERY DAYS 2 SEPARATED DOSES , PREDNISOLON
     Route: 048
  2. CYCLOSPORINE [Suspect]
     Active Substance: CYCLOSPORINE
     Indication: Immunosuppressant drug therapy
     Dosage: 0.76 ML ,DAILY DOSE: 0.76 ML MILLILITRE(S) EVERY DAYS 2 SEPARATED DOSES
     Route: 048
  3. vigantol [Concomitant]
     Indication: Vitamin D deficiency
     Dosage: 500 IU, DAILY DOSE: 500 IU INTERNATIONAL UNIT(S) EVERY DAYS
     Route: 048
  4. URSODIOL [Concomitant]
     Active Substance: URSODIOL
     Indication: Congenital absence of bile ducts
     Dosage: 10 ML, DAILY DOSE: 10 ML MILLILITRE(S) EVERY DAYS 2 SEPARATED DOSES
     Route: 048
  5. CELLCEPT [Suspect]
     Active Substance: MYCOPHENOLATE MOFETIL
     Indication: Immunosuppressant drug therapy
     Dosage: 6 ML ,DAILY DOSE: 6 ML MILLILITRE(S) EVERY DAYS 2 SEPARATED DOSES
     Route: 048
  6. ENALAPRIL [Concomitant]
     Active Substance: ENALAPRIL
     Indication: Hypertension
     Dosage: 1 ML, DAILY DOSE: 1 ML MILLILITRE(S) EVERY DAYS
     Route: 048
  7. AMLODIPINE BESYLATE [Concomitant]
     Active Substance: AMLODIPINE BESYLATE
     Indication: Hypertension
     Dosage: 1 DOSAGE FORMS ,DAILY DOSE: 1 DF DOSAGE FORM EVERY DAYS 2 SEPARATED DOSES
     Route: 048

REACTIONS (1)
  - Influenza [Unknown]

NARRATIVE: CASE EVENT DATE: 20200309
